FAERS Safety Report 21634774 (Version 6)
Quarter: 2023Q1

REPORT INFORMATION
  Report Type: Report from Study
  Country: ES (occurrence: ES)
  Receive Date: 20221123
  Receipt Date: 20230313
  Transmission Date: 20230418
  Serious: Yes (Other)
  Sender: FDA-Public Use
  Company Number: ES-G1 THERAPEUTICS-2022G1ES0000257

PATIENT

DRUGS (8)
  1. TRILACICLIB [Suspect]
     Active Substance: TRILACICLIB
     Indication: Myelosuppression
     Dosage: 439.2MG: 240 MG/M2 ADMINISTERED ON DAY 1 OF EACH CYCLE
     Route: 041
     Dates: start: 20210427, end: 20210427
  2. BEVACIZUMAB [Suspect]
     Active Substance: BEVACIZUMAB
     Indication: Colon cancer
     Dosage: 338 MG: 5 MG/KG ADMINISTERED ON DAY 1 OF EACH CYCLE
     Route: 041
     Dates: start: 20210427, end: 20210427
  3. IRINOTECAN [Suspect]
     Active Substance: IRINOTECAN
     Indication: Colon cancer
     Dosage: 301.95 MG: 165 MG/M2 ADMINISTERED ON DAY 1 OF EACH CYCLE
     Route: 041
     Dates: start: 20210427, end: 20210427
  4. OXALIPLATIN [Suspect]
     Active Substance: OXALIPLATIN
     Indication: Colon cancer
     Dosage: 155.55 MG: 85 MG/M2 ADMINISTERED ON DAY 1 OF EACH CYCLE
     Route: 041
     Dates: start: 20210427, end: 20210427
  5. LEUCOVORIN [Suspect]
     Active Substance: LEUCOVORIN
     Indication: Colon cancer
     Dosage: 732 MG: 400 MG/M2 ADMINISTERED ON DAY 1 OF EACH CYCLE
     Route: 041
     Dates: start: 20210427, end: 20210427
  6. FLUOROURACIL [Suspect]
     Active Substance: FLUOROURACIL
     Indication: Colon cancer
     Dosage: 5856 MG: 3200 MG/M2 ADMINISTERED OVER 48 HOURS
     Route: 041
     Dates: start: 20210427, end: 20210429
  7. LORAZEPAM [Concomitant]
     Active Substance: LORAZEPAM
     Indication: Anxiety
     Dosage: 1 MG, QD
     Route: 048
  8. HYDROXOCOBALAMIN\PYRIDOXINE HYDROCHLORIDE\THIAMINE HYDROCHLORIDE [Concomitant]
     Active Substance: HYDROXOCOBALAMIN\PYRIDOXINE HYDROCHLORIDE\THIAMINE HYDROCHLORIDE
     Indication: Hyperuricaemia
     Dosage: 1 TABLET, QD
     Route: 048
     Dates: start: 20210501

REACTIONS (1)
  - Transaminases increased [Recovered/Resolved]

NARRATIVE: CASE EVENT DATE: 20210621
